FAERS Safety Report 7519286-X (Version None)
Quarter: 2011Q2

REPORT INFORMATION
  Report Type: 
  Country: None (occurrence: None)
  Receive Date: 20110602
  Receipt Date: 20110519
  Transmission Date: 20111010
  Serious: Yes (Hospitalization, Other)
  Sender: FDA-Public Use
  Company Number: PHEH2005US10676

PATIENT

DRUGS (87)
  1. AREDIA [Suspect]
     Indication: HYPERCALCAEMIA
     Dosage: 90 MG, QMO
     Dates: start: 20010315, end: 20011226
  2. INNOHEP [Concomitant]
     Dosage: 13,000 UNK
     Dates: start: 20030820, end: 20030922
  3. ANZEMET [Concomitant]
  4. LIPITOR [Concomitant]
     Dosage: 10MG QD
  5. OXYCODONE HCL AND ACETAMINOPHEN [Concomitant]
     Dosage: 5-325 MG
  6. PROCHLORPERAZINE TAB [Concomitant]
     Dosage: 10 MG
  7. PROPOXYPHENE NAPSYLATE W/ ACETAMINOPHEN [Concomitant]
     Dosage: UNK
  8. METHYLPREDNISOLONE [Concomitant]
     Dosage: UNK
  9. ZOCOR [Concomitant]
  10. HYDROCODONE BITARTRATE AND ACETAMINOPHEN [Concomitant]
  11. AVELOX [Concomitant]
  12. LISINOPRIL [Concomitant]
  13. ZIAC [Concomitant]
  14. AREDIA [Suspect]
     Dates: start: 20030201, end: 20050101
  15. PEPCID [Concomitant]
  16. PERCOCET [Concomitant]
  17. NEURONTIN [Concomitant]
     Indication: MUSCLE SPASMS
     Dosage: 1200MG QD
     Dates: start: 20030801
  18. DICLOFENAC POTASSIUM [Concomitant]
  19. CYCLOBENZAPRINE [Concomitant]
     Dosage: 10 MG
  20. COMPRO [Concomitant]
     Dosage: 25 MG
  21. ZOLPIDEM [Concomitant]
  22. PSEUDOEPHEDRINE HCL [Concomitant]
  23. HERCEPTIN [Concomitant]
     Dosage: Q3WK
     Dates: start: 20020626
  24. LEVAQUIN [Concomitant]
  25. PROCRIT [Concomitant]
  26. DEXAMETHASONE [Concomitant]
  27. GEMZAR [Concomitant]
     Dates: start: 20010827, end: 20010829
  28. CELEBREX [Concomitant]
     Indication: ARTHRITIS
     Dosage: 200MG BID
     Route: 048
     Dates: start: 20010329
  29. QUININE SULFATE [Concomitant]
     Indication: MUSCLE SPASMS
     Dates: start: 20030402
  30. VALIUM [Concomitant]
  31. ANALPRAM HC [Concomitant]
  32. CRESTOR [Concomitant]
  33. LORTAB [Concomitant]
     Dosage: UNK
  34. NITROSTAT [Concomitant]
     Dosage: 0.4 MG
     Route: 060
  35. ZOMETA [Suspect]
     Indication: HYPERCALCAEMIA
     Dosage: 4 MG, UNK
     Dates: start: 20011226, end: 20041208
  36. TAXOTERE [Concomitant]
     Dosage: UNK, UNK
     Dates: start: 20010328, end: 20010703
  37. AMBIEN [Concomitant]
     Indication: SLEEP DISORDER
     Dosage: 10MG QHS
     Dates: start: 20020123
  38. NEXIUM [Concomitant]
  39. CYMBALTA [Concomitant]
  40. DIAZEPAM [Concomitant]
     Dosage: 2 MG, UNK
     Route: 048
  41. ALBUTEROL SULFATE AUTOHALER [Concomitant]
     Dosage: 909 MCG
  42. TUSSIONEX [Concomitant]
     Dosage: UNK
  43. FORADIL [Concomitant]
     Dosage: UNK
  44. DOXYCYCLINE [Concomitant]
     Dosage: UNK
  45. METOPROLOL TARTRATE [Concomitant]
  46. IMITREX ^CERENEX^ [Concomitant]
  47. ASPIRIN [Concomitant]
     Dosage: 81 MG, QD
  48. ZOMETA [Suspect]
     Dates: start: 20050401, end: 20050825
  49. ATIVAN [Concomitant]
     Indication: NAUSEA
     Dosage: 1MG Q8H PRN
     Dates: start: 20020123
  50. LOVENOX [Concomitant]
     Dates: start: 20030101
  51. IBUPROFEN [Concomitant]
     Indication: ARTHRITIS
  52. LEXAPRO [Concomitant]
  53. EMLA [Concomitant]
     Dosage: UNK
  54. CLARITIN-D 24 HOUR [Concomitant]
     Dosage: UNK
  55. ASMANEX TWISTHALER [Concomitant]
     Dosage: UNK
  56. HYCODAN                                 /CAN/ [Concomitant]
  57. GLUCOPHAGE [Concomitant]
  58. MARINOL [Concomitant]
     Indication: NAUSEA
     Dosage: 5MG UNK
  59. PAXIL [Concomitant]
     Indication: DEPRESSION
     Dosage: 40MG QD
     Route: 048
     Dates: start: 20020123
  60. ALLEGRA [Concomitant]
  61. OSCAL [Concomitant]
  62. CIPROFLOXACIN HYDROCHLORIDE [Concomitant]
     Dosage: 500 MG
  63. CODEINE W/GUAIFENESIN [Concomitant]
  64. CLARITIN [Concomitant]
  65. TOPAMAX [Concomitant]
  66. PRISTIQ [Concomitant]
  67. CEPHALEXIN [Concomitant]
     Dosage: 500 MG, BID
     Route: 048
  68. FEMARA [Concomitant]
     Dosage: 2.5MG QD
     Route: 048
     Dates: start: 20020123
  69. COUMADIN [Concomitant]
     Dosage: 1MG QD
     Route: 048
  70. TYLENOL PM [Concomitant]
  71. AMPICILLIN SODIUM [Concomitant]
  72. FASLODEX [Concomitant]
     Dosage: UNK
     Dates: start: 20070501
  73. ZITHROMAX [Concomitant]
     Dosage: 250 MG
  74. HUMIBID [Concomitant]
  75. SIMVASTATIN [Concomitant]
  76. CEFADROXIL [Concomitant]
  77. FUROSEMIDE [Concomitant]
  78. ZANTAC [Concomitant]
  79. NORTRIPTYLINE HCL [Concomitant]
  80. NAVELBINE [Concomitant]
     Dosage: UNK, UNK
     Dates: start: 20010703, end: 20020910
  81. TRILEPTAL [Concomitant]
     Dosage: 300 MG, UNK
     Route: 048
  82. GABAPENTIN [Concomitant]
  83. WARFARIN SODIUM [Concomitant]
     Dosage: UNK
  84. FLONASE [Concomitant]
     Dosage: UNK
     Route: 045
  85. CHLORHEXIDINE GLUCONATE [Concomitant]
     Dosage: UNK
  86. SPIRIVA [Concomitant]
     Dosage: 18 MCG
  87. PRILOSEC [Concomitant]

REACTIONS (100)
  - CEREBROVASCULAR ACCIDENT [None]
  - EXCESSIVE GRANULATION TISSUE [None]
  - TOOTH DISORDER [None]
  - SWELLING FACE [None]
  - LOBAR PNEUMONIA [None]
  - HEARING AID USER [None]
  - BLOOD UREA INCREASED [None]
  - BLOOD CREATININE INCREASED [None]
  - NAUSEA [None]
  - STAPHYLOCOCCAL INFECTION [None]
  - CEREBRAL ISCHAEMIA [None]
  - RENAL FAILURE ACUTE [None]
  - LEFT VENTRICULAR HYPERTROPHY [None]
  - SINUSITIS [None]
  - PRIMARY SEQUESTRUM [None]
  - TOOTH ABSCESS [None]
  - PULMONARY RADIATION INJURY [None]
  - DEAFNESS NEUROSENSORY [None]
  - COUGH [None]
  - ANAEMIA [None]
  - MUSCLE TWITCHING [None]
  - INSOMNIA [None]
  - CAROTID ARTERY DISEASE [None]
  - METATARSALGIA [None]
  - VERTIGO [None]
  - HYPERTENSION [None]
  - OSTEOMYELITIS [None]
  - TOOTHACHE [None]
  - MITRAL VALVE INCOMPETENCE [None]
  - DIZZINESS [None]
  - VISUAL IMPAIRMENT [None]
  - MUSCLE SPASMS [None]
  - MUSCULOSKELETAL CHEST PAIN [None]
  - WEIGHT INCREASED [None]
  - DYSURIA [None]
  - SYNCOPE [None]
  - OSTEOARTHRITIS [None]
  - DIVERTICULUM INTESTINAL [None]
  - ATELECTASIS [None]
  - GINGIVITIS [None]
  - GINGIVAL ULCERATION [None]
  - NEOPLASM MALIGNANT [None]
  - DEVICE OCCLUSION [None]
  - FATIGUE [None]
  - RASH [None]
  - DEHYDRATION [None]
  - RESTLESS LEGS SYNDROME [None]
  - MORTON'S NEUROMA [None]
  - ATROPHIC VULVOVAGINITIS [None]
  - PANCYTOPENIA [None]
  - FISTULA [None]
  - BONE LOSS [None]
  - MASTICATION DISORDER [None]
  - PLEURITIC PAIN [None]
  - DYSPNOEA [None]
  - MUSCULAR WEAKNESS [None]
  - CONFUSIONAL STATE [None]
  - MEMORY IMPAIRMENT [None]
  - HYPERLIPIDAEMIA [None]
  - DIABETES MELLITUS [None]
  - OSTEONECROSIS OF JAW [None]
  - IMPAIRED HEALING [None]
  - RHONCHI [None]
  - ANEURYSM [None]
  - PAIN IN EXTREMITY [None]
  - ERYTHEMA [None]
  - HYPERCALCAEMIA [None]
  - AORTIC ANEURYSM [None]
  - MENTAL STATUS CHANGES [None]
  - DYSPHEMIA [None]
  - SLEEP APNOEA SYNDROME [None]
  - TELANGIECTASIA [None]
  - POLYURIA [None]
  - CEREBRAL ARTERIOSCLEROSIS [None]
  - STRESS [None]
  - AMNESIA [None]
  - DROP ATTACKS [None]
  - EXPOSED BONE IN JAW [None]
  - PAIN [None]
  - DEEP VEIN THROMBOSIS [None]
  - PLEURAL EFFUSION [None]
  - NEUROPATHY PERIPHERAL [None]
  - RHINITIS [None]
  - HEADACHE [None]
  - BACK PAIN [None]
  - CARPAL TUNNEL SYNDROME [None]
  - INTERVERTEBRAL DISC DEGENERATION [None]
  - EXOSTOSIS [None]
  - PERIARTHRITIS [None]
  - PLANTAR FASCIITIS [None]
  - CELLULITIS [None]
  - THYROID NEOPLASM [None]
  - CARDIOMYOPATHY [None]
  - LOOSE TOOTH [None]
  - CHRONIC OBSTRUCTIVE PULMONARY DISEASE [None]
  - COORDINATION ABNORMAL [None]
  - BLOOD CALCIUM DECREASED [None]
  - PHARYNGEAL OEDEMA [None]
  - PULMONARY EMBOLISM [None]
  - TRICUSPID VALVE INCOMPETENCE [None]
